FAERS Safety Report 7850497-X (Version None)
Quarter: 2011Q4

REPORT INFORMATION
  Report Type: 
  Country: None (occurrence: None)
  Receive Date: 20111026
  Receipt Date: 20111026
  Transmission Date: 20120403
  Serious: No
  Sender: FDA-Public Use
  Company Number: None

PATIENT
  Age: 46 Year
  Sex: Female
  Weight: 78.925 kg

DRUGS (2)
  1. TRAMADOL HCL [Suspect]
     Indication: BACK PAIN
     Dosage: 50MG
     Route: 048
     Dates: start: 20110818, end: 20111025
  2. TRAMADOL HCL [Suspect]
     Indication: INTERVERTEBRAL DISC PROTRUSION
     Dosage: 50MG
     Route: 048
     Dates: start: 20110818, end: 20111025

REACTIONS (3)
  - HEADACHE [None]
  - URTICARIA [None]
  - INFLUENZA LIKE ILLNESS [None]
